FAERS Safety Report 5099781-6 (Version None)
Quarter: 2006Q3

REPORT INFORMATION
  Report Type: 
  Country: None (occurrence: None)
  Receive Date: 20060906
  Receipt Date: 20060810
  Transmission Date: 20061208
  Serious: Yes (Life-Threatening)
  Sender: FDA-Public Use
  Company Number: 2006075369

PATIENT
  Age: 67 Year
  Sex: Male
  Weight: 62.8 kg

DRUGS (4)
  1. IRINOTECAN HCL [Suspect]
     Indication: COLON CANCER
     Dosage: 100 MG/M2 (100 MG/M2, UNKNOWN), INTRAVENOUS
     Route: 042
     Dates: start: 20060322, end: 20060418
  2. TEGAFUR/GIMERACIL/OTERACIL POTASSIUM (TEGAFUR/GIMERACIL/OTERACIL POTAS [Suspect]
     Indication: COLON CANCER
     Dosage: 120 MG (60 MG, 2 IN 1 D); ORAL, 120 MG (60 MG, 2 IN 1 D); ORAL
     Route: 048
     Dates: start: 20060322, end: 20060406
  3. TEGAFUR/GIMERACIL/OTERACIL POTASSIUM (TEGAFUR/GIMERACIL/OTERACIL POTAS [Suspect]
     Indication: COLON CANCER
     Dosage: 120 MG (60 MG, 2 IN 1 D); ORAL, 120 MG (60 MG, 2 IN 1 D); ORAL
     Route: 048
     Dates: start: 20060418, end: 20060430
  4. NORVASC [Concomitant]

REACTIONS (3)
  - CELL MARKER INCREASED [None]
  - INTERSTITIAL LUNG DISEASE [None]
  - PNEUMONIA FUNGAL [None]
